FAERS Safety Report 17354972 (Version 3)
Quarter: 2023Q1

REPORT INFORMATION
  Report Type: Report from Study
  Country: DK (occurrence: DK)
  Receive Date: 20200131
  Receipt Date: 20230316
  Transmission Date: 20230418
  Serious: Yes (Hospitalization, Other)
  Sender: FDA-Public Use
  Company Number: DK-ASPEN-GLO2020DK000644

PATIENT

DRUGS (27)
  1. CHLORAMBUCIL [Suspect]
     Active Substance: CHLORAMBUCIL
     Indication: Chronic lymphocytic leukaemia
     Dosage: 0.5 MG/KG, 1 DOSE 2 WEEKS
     Route: 048
     Dates: start: 20150922, end: 20160815
  2. OBINUTUZUMAB [Suspect]
     Active Substance: OBINUTUZUMAB
     Indication: Chronic lymphocytic leukaemia
     Dosage: 100 MG EVERY 4 WEEKS
     Route: 042
     Dates: start: 20150922, end: 20160209
  3. BIMATOPROST\TIMOLOL [Concomitant]
     Active Substance: BIMATOPROST\TIMOLOL
     Indication: Prophylaxis
     Dosage: 1 DF, QD
     Route: 047
  4. ACETYLSALISYLSYRE [Concomitant]
     Indication: Thrombosis prophylaxis
     Dosage: 75 MG, QD
     Route: 048
  5. METFORMIN [Concomitant]
     Active Substance: METFORMIN HYDROCHLORIDE
     Indication: Type 2 diabetes mellitus
     Dosage: 1000 MG, BID
     Route: 048
  6. SIMVASTATIN [Concomitant]
     Active Substance: SIMVASTATIN
     Indication: Prophylaxis
     Dosage: 40 MG, QD
     Route: 048
  7. METOPROLOL [Concomitant]
     Active Substance: METOPROLOL
     Indication: Hypertension
     Dosage: 50 MG, QD
     Route: 048
     Dates: start: 20160920
  8. DORZOLAMIDE [Concomitant]
     Active Substance: DORZOLAMIDE
     Indication: Glaucoma
     Dosage: 1 DF, BID
     Route: 047
     Dates: start: 20160331
  9. FUROSEMIDE [Concomitant]
     Active Substance: FUROSEMIDE
     Indication: Hypertension
     Dosage: 30 MG, QD
     Route: 048
     Dates: start: 20170217
  10. CHOLECALCIFEROL [Concomitant]
     Active Substance: CHOLECALCIFEROL
     Indication: Vitamin supplementation
     Dosage: 1 DF, QD
     Route: 048
     Dates: start: 20170119
  11. MOXONIDINE [Concomitant]
     Active Substance: MOXONIDINE
     Indication: Hypertension
     Dosage: 0.2 MG, QD
     Route: 048
     Dates: start: 20170314, end: 20171014
  12. INSULIN ASPART [Concomitant]
     Active Substance: INSULIN ASPART
     Indication: Diabetes mellitus
     Dosage: 8 IU, BID
     Route: 058
     Dates: start: 20170818
  13. ACETAMINOPHEN [Concomitant]
     Active Substance: ACETAMINOPHEN
     Indication: Hyperthermia malignant
     Dosage: 500 MG, QID
     Route: 048
     Dates: start: 20190807
  14. ACETAMINOPHEN [Concomitant]
     Active Substance: ACETAMINOPHEN
     Indication: Pain
     Dosage: 1330 MG, TID
     Route: 048
     Dates: start: 20180122
  15. MAXIDEX [Concomitant]
     Active Substance: DEXAMETHASONE
     Indication: Hyperthermia malignant
     Dosage: 1 DF, BID
     Route: 047
     Dates: start: 20180622
  16. ENALAPRIL [Concomitant]
     Active Substance: ENALAPRIL
     Indication: Hypertension
     Dosage: 20 MG, QD
     Route: 048
     Dates: start: 20190729
  17. FERROFUMARAT [Concomitant]
     Indication: Iron deficiency anaemia
     Dosage: 1 DF, QD
     Route: 048
     Dates: start: 20190806
  18. MORPHINE [Concomitant]
     Active Substance: MORPHINE
     Indication: Pain
     Dosage: 60 MG, BID
     Route: 048
     Dates: start: 20190802
  19. MORPHINE [Concomitant]
     Active Substance: MORPHINE
     Dosage: 10 MG, PRN
     Route: 048
     Dates: start: 20190807
  20. METOCLOPRAMIDE [Concomitant]
     Active Substance: METOCLOPRAMIDE
     Indication: Nausea
     Dosage: 10 MG, TID
     Route: 048
     Dates: start: 20190801
  21. PENICILLIN V [Concomitant]
     Active Substance: PENICILLIN V
     Indication: Infection
     Dosage: 1000000 IU, QID
     Route: 048
     Dates: start: 20190807, end: 20190903
  22. SODIUM CHLORIDE [Concomitant]
     Active Substance: SODIUM CHLORIDE
     Indication: Fluid replacement
     Dosage: 9 MG, PRN
     Route: 042
     Dates: start: 20190724
  23. ARANESP [Concomitant]
     Active Substance: DARBEPOETIN ALFA
     Indication: Anaemia
     Dosage: 150 MG WEEKLY
     Route: 058
     Dates: start: 20190919, end: 20191126
  24. SODIUM PICOSULFATE [Concomitant]
     Active Substance: SODIUM PICOSULFATE
     Indication: Constipation
     Dosage: QD
     Route: 048
     Dates: start: 20190928, end: 20191014
  25. METHADONE [Concomitant]
     Active Substance: METHADONE HYDROCHLORIDE
     Indication: Pain
     Dosage: 0.5 DF, TID
     Route: 048
     Dates: start: 20190807
  26. NOVORAPID [Concomitant]
     Active Substance: INSULIN ASPART
     Indication: Diabetes mellitus
     Dosage: 4-8, PRN
     Route: 058
     Dates: start: 20190722, end: 20191014
  27. HYDROCHLOROTHIAZIDE [Concomitant]
     Active Substance: HYDROCHLOROTHIAZIDE
     Indication: Product used for unknown indication
     Route: 065

REACTIONS (1)
  - Staphylococcal infection [Recovered/Resolved]

NARRATIVE: CASE EVENT DATE: 20190928
